FAERS Safety Report 8993074 (Version 1)
Quarter: 2013Q1

REPORT INFORMATION
  Report Type: Report from Study
  Country: JP (occurrence: JP)
  Receive Date: 20130102
  Receipt Date: 20130102
  Transmission Date: 20140127
  Serious: Yes (Life-Threatening, Hospitalization, Other)
  Sender: FDA-Public Use
  Company Number: JP-ROCHE-1142405

PATIENT
  Age: 82 Year
  Sex: Male

DRUGS (14)
  1. ALTEPLASE [Suspect]
     Indication: EMBOLIC STROKE
     Route: 042
     Dates: start: 20120304, end: 20120304
  2. WARFARIN POTASSIUM [Suspect]
     Indication: EMBOLIC STROKE
     Route: 048
     Dates: end: 20120304
  3. WARFARIN POTASSIUM [Suspect]
     Route: 048
     Dates: start: 20120305, end: 20120309
  4. WARFARIN POTASSIUM [Suspect]
     Route: 048
     Dates: start: 20120316, end: 20120318
  5. WARFARIN POTASSIUM [Suspect]
     Route: 048
     Dates: start: 20120319
  6. RADICUT [Concomitant]
     Route: 042
     Dates: start: 20120304, end: 20120304
  7. RADICUT [Concomitant]
     Route: 041
     Dates: start: 20120305, end: 20120313
  8. GLYCEROL [Concomitant]
     Route: 041
     Dates: start: 20120310, end: 20120310
  9. GLYCEROL [Concomitant]
     Route: 041
     Dates: start: 20120311, end: 20120313
  10. GLYCEROL [Concomitant]
     Dosage: 200 DF
     Route: 041
     Dates: start: 20120314, end: 20120314
  11. TAKEPRON [Concomitant]
     Route: 048
     Dates: start: 20120305
  12. MAINTATE [Concomitant]
     Route: 048
  13. HARNAL [Concomitant]
     Dosage: 0.2 DF
     Route: 048
  14. PROSTAL [Concomitant]
     Dosage: 25 DF
     Route: 048

REACTIONS (1)
  - Cystitis haemorrhagic [Recovering/Resolving]
